FAERS Safety Report 9912099 (Version 4)
Quarter: 2014Q3

REPORT INFORMATION
  Report Type: Spontaneous
  Country: JP (occurrence: JP)
  Receive Date: 20140219
  Receipt Date: 20140721
  Transmission Date: 20150326
  Serious: Yes (Death)
  Sender: FDA-Public Use
  Company Number: JP-ROCHE-1352406

PATIENT
  Age: 88 Year
  Sex: Female

DRUGS (13)
  1. ARICEPT [Concomitant]
     Active Substance: DONEPEZIL HYDROCHLORIDE
  2. AVASTIN [Suspect]
     Active Substance: BEVACIZUMAB
     Indication: RETINAL VEIN OCCLUSION
     Route: 047
     Dates: start: 20130322, end: 20130801
  3. WARFARIN [Suspect]
     Active Substance: WARFARIN
     Indication: ATRIAL FIBRILLATION
     Route: 048
  4. CARNACULIN [Concomitant]
     Active Substance: KALLIDINOGENASE
     Route: 065
     Dates: start: 20130219
  5. NIKORANMART [Concomitant]
     Active Substance: NICORANDIL
  6. LUCENTIS [Suspect]
     Active Substance: RANIBIZUMAB
     Indication: RETINAL VEIN OCCLUSION
     Route: 050
     Dates: start: 20131125
  7. ARTIST [Concomitant]
     Active Substance: CARVEDILOL
  8. FERROMIA [Concomitant]
     Active Substance: FERROUS CITRATE
  9. NORVASC [Concomitant]
     Active Substance: AMLODIPINE BESYLATE
  10. BAYASPIRIN [Suspect]
     Active Substance: ASPIRIN
     Indication: ANGINA PECTORIS
     Route: 048
  11. DIOVAN [Concomitant]
     Active Substance: VALSARTAN
  12. PROPIVERINE HYDROCHLORIDE [Concomitant]
     Active Substance: PROPIVERINE HYDROCHLORIDE
  13. GASTER [Concomitant]
     Active Substance: FAMOTIDINE

REACTIONS (3)
  - Blood creatinine increased [Unknown]
  - Cerebral haemorrhage [Fatal]
  - Blood glucose increased [Recovered/Resolved]

NARRATIVE: CASE EVENT DATE: 20140207
